FAERS Safety Report 5674722-9 (Version None)
Quarter: 2008Q1

REPORT INFORMATION
  Report Type: 
  Country: None (occurrence: None)
  Receive Date: 20080319
  Receipt Date: 20080319
  Transmission Date: 20080703
  Serious: No
  Sender: FDA-Public Use
  Company Number: None

PATIENT
  Sex: Female
  Weight: 90.7194 kg

DRUGS (3)
  1. SERTRALINE [Suspect]
     Indication: ANXIETY
     Dosage: 1 DAILY PO
     Route: 048
     Dates: start: 20080201, end: 20080318
  2. SERTRALINE [Suspect]
     Indication: IRRITABILITY
     Dosage: 1 DAILY PO
     Route: 048
     Dates: start: 20080201, end: 20080318
  3. SERTRALINE [Suspect]
     Indication: STRESS
     Dosage: 1 DAILY PO
     Route: 048
     Dates: start: 20080201, end: 20080318

REACTIONS (2)
  - DRUG INEFFECTIVE [None]
  - THERAPEUTIC RESPONSE UNEXPECTED WITH DRUG SUBSTITUTION [None]
